FAERS Safety Report 8137485-3 (Version None)
Quarter: 2012Q1

REPORT INFORMATION
  Report Type: 
  Country: None (occurrence: None)
  Receive Date: 20120215
  Receipt Date: 20120211
  Transmission Date: 20120608
  Serious: Yes (Other)
  Sender: FDA-Public Use
  Company Number: US-BAYER-2012-014169

PATIENT
  Age: 30 Year
  Sex: Female

DRUGS (1)
  1. MIRENA [Suspect]
     Dosage: UNK
     Route: 015
     Dates: start: 20070501, end: 20120208

REACTIONS (4)
  - NAUSEA [None]
  - AMENORRHOEA [None]
  - VAGINAL HAEMORRHAGE [None]
  - VOMITING [None]
